FAERS Safety Report 13179684 (Version 1)
Quarter: 2017Q1

REPORT INFORMATION
  Report Type: Spontaneous
  Country: US (occurrence: US)
  Receive Date: 20170202
  Receipt Date: 20170202
  Transmission Date: 20170428
  Serious: No
  Sender: FDA-Public Use
  Company Number: None

PATIENT
  Age: 56 Year
  Sex: Female

DRUGS (1)
  1. PROPYLTHIORUACIL [Suspect]
     Active Substance: PROPYLTHIOURACIL
     Indication: THYROID DISORDER
     Route: 048
     Dates: start: 20170124, end: 20170202

REACTIONS (4)
  - Pruritus [None]
  - Swelling [None]
  - Product quality issue [None]
  - Rash [None]

NARRATIVE: CASE EVENT DATE: 20170201
